FAERS Safety Report 25625744 (Version 1)
Quarter: 2025Q3

REPORT INFORMATION
  Report Type: Spontaneous
  Country: US (occurrence: US)
  Receive Date: 20250731
  Receipt Date: 20250731
  Transmission Date: 20251021
  Serious: No
  Sender: AMICUS THERAPEUTICS
  Company Number: US-AMICUS THERAPEUTICS, INC.-AMI_3371

PATIENT
  Age: 69 Year
  Sex: Male

DRUGS (2)
  1. GALAFOLD [Suspect]
     Active Substance: MIGALASTAT HYDROCHLORIDE
     Indication: Fabry^s disease
     Dosage: 123 MILLIGRAM, QOD
     Route: 048
     Dates: start: 201810
  2. GALAFOLD [Suspect]
     Active Substance: MIGALASTAT HYDROCHLORIDE
     Route: 048
     Dates: start: 20231103

REACTIONS (2)
  - Glomerular filtration rate decreased [Not Recovered/Not Resolved]
  - Off label use [Not Recovered/Not Resolved]

NARRATIVE: CASE EVENT DATE: 20231003
